FAERS Safety Report 13284929 (Version 1)
Quarter: 2017Q1

REPORT INFORMATION
  Report Type: Spontaneous
  Country: US (occurrence: US)
  Receive Date: 20170301
  Receipt Date: 20170301
  Transmission Date: 20170428
  Serious: Yes (Hospitalization)
  Sender: FDA-Public Use
  Company Number: None

PATIENT
  Age: 60 Year
  Sex: Male
  Weight: 103.5 kg

DRUGS (1)
  1. LOSARTAN. [Suspect]
     Active Substance: LOSARTAN
     Indication: HYPERTENSION
     Route: 048
     Dates: start: 20170126, end: 20170226

REACTIONS (5)
  - Drug effect decreased [None]
  - Product quality issue [None]
  - Drug ineffective [None]
  - Blood pressure increased [None]
  - Hypertensive crisis [None]

NARRATIVE: CASE EVENT DATE: 20170227
